FAERS Safety Report 8764843 (Version 1)
Quarter: 2012Q4

REPORT INFORMATION
  Report Type: Report from Study
  Country: US (occurrence: US)
  Receive Date: 20120901
  Receipt Date: 20120901
  Transmission Date: 20130627
  Serious: Yes (Other)
  Sender: FDA-Public Use
  Company Number: US-ROCHE-1108795

PATIENT

DRUGS (1)
  1. AVASTIN [Suspect]
     Indication: SQUAMOUS CELL CARCINOMA

REACTIONS (8)
  - Leukopenia [Unknown]
  - Disease recurrence [Unknown]
  - Dysphagia [Unknown]
  - Tumour pain [Unknown]
  - Weight decreased [Unknown]
  - Leukocytosis [Unknown]
  - Nausea [Unknown]
  - Vomiting [Unknown]
